FAERS Safety Report 7556346-1 (Version None)
Quarter: 2011Q2

REPORT INFORMATION
  Report Type: 
  Country: None (occurrence: None)
  Receive Date: 20110620
  Receipt Date: 20110609
  Transmission Date: 20111010
  Serious: No
  Sender: FDA-Public Use
  Company Number: US-JNJFOC-20110605951

PATIENT
  Sex: Male
  Weight: 77.11 kg

DRUGS (4)
  1. FENTANYL-100 [Suspect]
     Indication: SYSTEMIC LUPUS ERYTHEMATOSUS
     Route: 062
     Dates: start: 20040101, end: 20100101
  2. FENTANYL-100 [Suspect]
     Route: 062
     Dates: start: 20100101
  3. FENTANYL-100 [Suspect]
     Indication: PAIN
     Route: 062
     Dates: start: 20040101, end: 20100101
  4. FENTANYL-100 [Suspect]
     Route: 062
     Dates: start: 20100101

REACTIONS (3)
  - APPLICATION SITE REACTION [None]
  - WRONG TECHNIQUE IN DRUG USAGE PROCESS [None]
  - PRODUCT QUALITY ISSUE [None]
